FAERS Safety Report 24878736 (Version 1)
Quarter: 2025Q1

REPORT INFORMATION
  Report Type: Report from Study
  Country: ES (occurrence: ES)
  Receive Date: 20250123
  Receipt Date: 20250123
  Transmission Date: 20250408
  Serious: Yes (Other)
  Sender: ALEXION PHARMACEUTICALS
  Company Number: ES-AstraZeneca-CH-00787609A

PATIENT
  Age: 62 Year

DRUGS (1)
  1. TEZEPELUMAB [Suspect]
     Active Substance: TEZEPELUMAB
     Indication: Asthma
     Dosage: UNK UNK, Q4W

REACTIONS (2)
  - Respiratory distress [Not Recovered/Not Resolved]
  - Dyspnoea [Unknown]
